FAERS Safety Report 8490862-3 (Version None)
Quarter: 2012Q3

REPORT INFORMATION
  Report Type: 
  Country: None (occurrence: None)
  Receive Date: 20120706
  Receipt Date: 20120622
  Transmission Date: 20120928
  Serious: Yes (Other)
  Sender: FDA-Public Use
  Company Number: DE-RANBAXY-2012RR-56973

PATIENT
  Sex: Female

DRUGS (2)
  1. OFLOXACIN [Suspect]
     Indication: CYSTITIS NONINFECTIVE
     Dosage: 1 DF, QD
     Route: 048
     Dates: start: 20120429, end: 20120501
  2. OFLOXACIN [Suspect]
     Dosage: 0.5 DF, QD
     Route: 048
     Dates: start: 20120502, end: 20120503

REACTIONS (3)
  - TENDON RUPTURE [None]
  - LIGAMENT SPRAIN [None]
  - HAEMATOMA [None]
